FAERS Safety Report 9640386 (Version 14)
Quarter: 2015Q3

REPORT INFORMATION
  Report Type: Report from Study
  Country: US (occurrence: US)
  Receive Date: 20131023
  Receipt Date: 20150716
  Transmission Date: 20151125
  Serious: Yes (Hospitalization, Other)
  Sender: FDA-Public Use
  Company Number: US-SA-2013SA105371

PATIENT
  Age: 44 Year
  Sex: Female

DRUGS (7)
  1. AUBAGIO [Suspect]
     Active Substance: TERIFLUNOMIDE
     Indication: MULTIPLE SCLEROSIS
     Route: 048
     Dates: start: 20130920
  2. AUBAGIO [Suspect]
     Active Substance: TERIFLUNOMIDE
     Indication: MULTIPLE SCLEROSIS
     Route: 048
  3. AUBAGIO [Suspect]
     Active Substance: TERIFLUNOMIDE
     Indication: MULTIPLE SCLEROSIS
     Route: 048
     Dates: start: 20130501
  4. AUBAGIO [Suspect]
     Active Substance: TERIFLUNOMIDE
     Indication: MULTIPLE SCLEROSIS
     Route: 048
     Dates: start: 20131115, end: 20140501
  5. AUBAGIO [Suspect]
     Active Substance: TERIFLUNOMIDE
     Indication: MULTIPLE SCLEROSIS
     Route: 048
     Dates: start: 20140813
  6. AVONEX [Concomitant]
     Active Substance: INTERFERON BETA-1A
     Indication: MULTIPLE SCLEROSIS
     Dates: start: 20130501, end: 20130912
  7. AUBAGIO [Suspect]
     Active Substance: TERIFLUNOMIDE
     Indication: MULTIPLE SCLEROSIS
     Route: 048
     Dates: start: 201405, end: 20140617

REACTIONS (33)
  - Memory impairment [Unknown]
  - Hearing impaired [Unknown]
  - Fatigue [Unknown]
  - Asthenia [Unknown]
  - Pain [Unknown]
  - Neuralgia [Unknown]
  - Eye movement disorder [Unknown]
  - Skin reaction [Unknown]
  - Rash pruritic [Not Recovered/Not Resolved]
  - Acne [Unknown]
  - Cerebrovascular accident [Unknown]
  - Tinnitus [Unknown]
  - Headache [Unknown]
  - Electric shock [Unknown]
  - Nausea [Unknown]
  - Multiple sclerosis relapse [Unknown]
  - Drug dose omission [Unknown]
  - Drug dose omission [Unknown]
  - Mass [Unknown]
  - Eye disorder [Unknown]
  - Tremor [Unknown]
  - Pneumonia [Not Recovered/Not Resolved]
  - Rash [Unknown]
  - Condition aggravated [Unknown]
  - Hypertension [Unknown]
  - Hallucination [Unknown]
  - Pain in extremity [Unknown]
  - Neuropathy peripheral [Not Recovered/Not Resolved]
  - Neuropathy peripheral [Unknown]
  - Seizure [Unknown]
  - Multiple sclerosis relapse [Unknown]
  - Visual impairment [Unknown]
  - Drooling [Unknown]

NARRATIVE: CASE EVENT DATE: 20140304
